FAERS Safety Report 6123615-1 (Version None)
Quarter: 2009Q1

REPORT INFORMATION
  Report Type: 
  Country: None (occurrence: None)
  Receive Date: 20090319
  Receipt Date: 20090311
  Transmission Date: 20090719
  Serious: Yes (Hospitalization)
  Sender: FDA-Public Use
  Company Number: US-KINGPHARMUSA00001-K200900270

PATIENT
  Age: 70 Year
  Sex: Male

DRUGS (9)
  1. ALTACE [Suspect]
     Indication: HYPERTENSION
     Dosage: 5 MG, QD
     Route: 048
     Dates: end: 20090209
  2. PRAZOSIN HCL [Concomitant]
     Dosage: 5 G, UNK
     Route: 048
  3. IMODIUM                            /00384302/ [Concomitant]
     Indication: DIARRHOEA
     Route: 048
  4. KARDEGIC                           /00002703/ [Concomitant]
     Indication: ATRIAL FIBRILLATION
     Dosage: 75 MG, QD
     Route: 048
     Dates: end: 20090212
  5. XATRAL                             /00975301/ [Concomitant]
     Dosage: 10 MG, UNK
     Route: 048
  6. NORSET [Concomitant]
     Indication: DEPRESSION
     Dosage: 15 MG, UNK
     Route: 048
  7. SECTRAL [Concomitant]
     Indication: HYPERTENSION
     Dosage: 400 MG, UNK
     Route: 048
  8. DEPAKENE [Concomitant]
     Dosage: UNK
     Route: 048
  9. INEXIUM                            /01479302/ [Concomitant]
     Indication: ULCER
     Dosage: 20 MG, UNK
     Route: 048

REACTIONS (8)
  - DEHYDRATION [None]
  - DYSPNOEA [None]
  - HYPERKALAEMIA [None]
  - HYPOTENSION [None]
  - PAIN [None]
  - RENAL FAILURE ACUTE [None]
  - TACHYPNOEA [None]
  - WHEEZING [None]
